FAERS Safety Report 19157086 (Version 1)
Quarter: 2021Q2

REPORT INFORMATION
  Report Type: Report from Study
  Country: US (occurrence: US)
  Receive Date: 20210420
  Receipt Date: 20210420
  Transmission Date: 20210717
  Serious: No
  Sender: FDA-Public Use
  Company Number: US-BIOVITRUM-2021US3661

PATIENT
  Age: 3 Year
  Sex: Male

DRUGS (1)
  1. KINERET [Suspect]
     Active Substance: ANAKINRA
     Indication: PYREXIA
     Route: 058
     Dates: start: 201902

REACTIONS (10)
  - Anger [Unknown]
  - Condition aggravated [Unknown]
  - Blood urea increased [Unknown]
  - Arthralgia [Unknown]
  - Neutrophil count decreased [Unknown]
  - Off label use [Unknown]
  - Pharyngitis [Unknown]
  - White blood cell count decreased [Unknown]
  - Ear infection [Unknown]
  - Pain [Unknown]

NARRATIVE: CASE EVENT DATE: 201902
